FAERS Safety Report 24349549 (Version 1)
Quarter: 2024Q3

REPORT INFORMATION
  Report Type: Report from Study
  Country: US (occurrence: US)
  Receive Date: 20240923
  Receipt Date: 20240923
  Transmission Date: 20241016
  Serious: Yes (Other)
  Sender: ABBVIE
  Company Number: US-ABBVIE-5930233

PATIENT
  Age: 68 Year
  Sex: Male

DRUGS (1)
  1. IMBRUVICA [Suspect]
     Active Substance: IBRUTINIB
     Indication: Neutropenia
     Route: 048
     Dates: start: 201908

REACTIONS (2)
  - Renal surgery [Unknown]
  - Renal mass [Unknown]

NARRATIVE: CASE EVENT DATE: 20240501
